FAERS Safety Report 18332478 (Version 1)
Quarter: 2020Q4

REPORT INFORMATION
  Report Type: Spontaneous
  Country: IN (occurrence: IN)
  Receive Date: 20201001
  Receipt Date: 20201001
  Transmission Date: 20210113
  Serious: Yes (Hospitalization, Other)
  Sender: FDA-Public Use
  Company Number: IN-LUPIN PHARMACEUTICALS INC.-2020-06619

PATIENT
  Age: 59 Year
  Sex: Male

DRUGS (4)
  1. MINOCYCLINE [Suspect]
     Active Substance: MINOCYCLINE HYDROCHLORIDE
     Indication: BACTERAEMIA
     Dosage: UNK
     Route: 065
  2. LEVOFLOXACIN. [Suspect]
     Active Substance: LEVOFLOXACIN
     Indication: BACTERAEMIA
     Dosage: UNK
     Route: 065
  3. POLYMYXIN B. [Concomitant]
     Active Substance: POLYMYXIN B
     Indication: ESCHERICHIA INFECTION
     Dosage: UNK
     Route: 065
  4. CEFEPIME HYDROCHLORIDE, TAZOBACTM SODIUM [Suspect]
     Active Substance: CEFEPIME HYDROCHLORIDE\TAZOBACTAM SODIUM
     Indication: ESCHERICHIA INFECTION
     Dosage: UNK
     Route: 065

REACTIONS (4)
  - Nosocomial infection [Not Recovered/Not Resolved]
  - Bacteraemia [Not Recovered/Not Resolved]
  - Flavobacterium infection [Not Recovered/Not Resolved]
  - Sepsis [Not Recovered/Not Resolved]
